FAERS Safety Report 8937333 (Version 1)
Quarter: 2012Q4

REPORT INFORMATION
  Report Type: 
  Country: KR (occurrence: KR)
  Receive Date: 20121203
  Receipt Date: 20121203
  Transmission Date: 20130627
  Serious: Yes (Hospitalization)
  Sender: FDA-Public Use
  Company Number: PHHY2012KR107472

PATIENT
  Age: 57 Year
  Sex: Male

DRUGS (1)
  1. GLIVEC [Suspect]
     Indication: CHRONIC MYELOID LEUKAEMIA

REACTIONS (3)
  - Pneumonia aspiration [Unknown]
  - Pancytopenia [Unknown]
  - Dysphagia [Unknown]
